FAERS Safety Report 9067500 (Version 1)
Quarter: 2013Q1

REPORT INFORMATION
  Report Type: Spontaneous
  Country: BR (occurrence: BR)
  Receive Date: 20130129
  Receipt Date: 20130129
  Transmission Date: 20140127
  Serious: Yes (Death)
  Sender: FDA-Public Use
  Company Number: PHHY2013BR007834

PATIENT
  Sex: Male

DRUGS (2)
  1. EXELON PATCH [Suspect]
     Dosage: 9.5 MG\24HRS
     Route: 062
  2. EXELON PATCH [Suspect]
     Dosage: 4.6 MG\24HRS
     Route: 062

REACTIONS (1)
  - Parkinson^s disease [Fatal]
